FAERS Safety Report 17588938 (Version 2)
Quarter: 2020Q3

REPORT INFORMATION
  Report Type: Report from Study
  Country: IE (occurrence: IE)
  Receive Date: 20200327
  Receipt Date: 20200813
  Transmission Date: 20201102
  Serious: Yes (Other)
  Sender: FDA-Public Use
  Company Number: IE-BAUSCH-BL-2020-009449

PATIENT
  Age: 60 Year
  Sex: Female

DRUGS (1)
  1. KYNTHEUM (BRODALUMAB) [Suspect]
     Active Substance: BRODALUMAB
     Indication: PSORIASIS
     Dosage: 210 MG WEEK 0, 1, 2 THEN EVERY TWO WEEKS, PRE?FILLED INJECTION
     Route: 058
     Dates: start: 20200110, end: 2020

REACTIONS (4)
  - Oral fungal infection [Not Recovered/Not Resolved]
  - Sinusitis [Not Recovered/Not Resolved]
  - Therapy cessation [Unknown]
  - Therapy interrupted [Unknown]
